FAERS Safety Report 16833286 (Version 5)
Quarter: 2020Q2

REPORT INFORMATION
  Report Type: Spontaneous
  Country: MX (occurrence: MX)
  Receive Date: 20190920
  Receipt Date: 20200518
  Transmission Date: 20200713
  Serious: Yes (Hospitalization, Other)
  Sender: FDA-Public Use
  Company Number: MX-ALVOGEN-2019-ALVOGEN-101405

PATIENT
  Age: 21287 Day
  Sex: Male
  Weight: 86 kg

DRUGS (42)
  1. ACETYLSALICYLIC ACID [Concomitant]
     Active Substance: ASPIRIN
     Indication: PRODUCT USED FOR UNKNOWN INDICATION
  2. ATORVASTATIN CALCIUM. [Concomitant]
     Active Substance: ATORVASTATIN CALCIUM
     Indication: CARDIAC DISORDER
     Route: 048
     Dates: start: 201702
  3. ATORVASTATIN CALCIUM. [Concomitant]
     Active Substance: ATORVASTATIN CALCIUM
     Indication: CARDIAC DISORDER
  4. SACUBITRIL/VALSARTAN [Concomitant]
     Active Substance: SACUBITRIL\VALSARTAN
     Indication: BLOOD PRESSURE ABNORMAL
     Dosage: AT A DOSE OF 0.5 DF (100 MG), BID?SACUBITRIL: 49.0MG VALSARTAN: 51.0MG
     Route: 048
     Dates: start: 201806
  5. SACUBITRIL/VALSARTAN [Concomitant]
     Active Substance: SACUBITRIL\VALSARTAN
     Indication: CARDIAC FAILURE
     Dosage: AT A DOSE OF 0.5 DF (100 MG), BID?SACUBITRIL: 49.0MG VALSARTAN: 51.0MG
     Route: 048
     Dates: start: 201806
  6. BUMETANIDE. [Concomitant]
     Active Substance: BUMETANIDE
     Indication: PRODUCT USED FOR UNKNOWN INDICATION
  7. SACUBITRIL/VALSARTAN [Concomitant]
     Active Substance: SACUBITRIL\VALSARTAN
     Indication: CARDIAC FAILURE
     Dosage: (100 MG) BID?SACUBITRIL: 49.0MG VALSARTAN: 51.0MG
     Route: 048
     Dates: start: 201805
  8. SACUBITRIL/VALSARTAN [Concomitant]
     Active Substance: SACUBITRIL\VALSARTAN
     Indication: BLOOD PRESSURE ABNORMAL
     Dosage: SACUBITRIL: 49.0MG VALSARTAN: 51.0MG
     Route: 048
     Dates: start: 201802
  9. SACUBITRIL/VALSARTAN [Concomitant]
     Active Substance: SACUBITRIL\VALSARTAN
     Indication: HYPERTENSION
     Dosage: AT A DOSE OF 0.5 DF (100 MG), BID?SACUBITRIL: 49.0MG VALSARTAN: 51.0MG
     Route: 048
     Dates: start: 201806
  10. SACUBITRIL/VALSARTAN [Concomitant]
     Active Substance: SACUBITRIL\VALSARTAN
     Indication: CARDIAC DISORDER
     Dosage: (49 MG OF SACUBITRIL AND 51 MG OF VALSARTAN), ORAL (BID)
     Route: 048
     Dates: start: 2017
  11. SACUBITRIL/VALSARTAN [Concomitant]
     Active Substance: SACUBITRIL\VALSARTAN
     Indication: HYPERTENSION
     Dosage: (100 MG) BID ?SACUBITRIL: 49.0MG VALSARTAN: 51.0MG
     Route: 048
     Dates: start: 201805
  12. LINAGLIPTIN [Concomitant]
     Active Substance: LINAGLIPTIN
     Indication: PRODUCT USED FOR UNKNOWN INDICATION
  13. TRAMADOL. [Concomitant]
     Active Substance: TRAMADOL
     Indication: PAIN IN EXTREMITY
  14. SACUBITRIL/VALSARTAN [Concomitant]
     Active Substance: SACUBITRIL\VALSARTAN
     Indication: BLOOD PRESSURE ABNORMAL
     Dosage: (100 MG) BID?SACUBITRIL: 49.0MG VALSARTAN: 51.0MG
     Route: 048
     Dates: start: 201805
  15. SACUBITRIL/VALSARTAN [Concomitant]
     Active Substance: SACUBITRIL\VALSARTAN
     Indication: CARDIAC FAILURE
     Dosage: 49 MG OF SACUBITRIL AND 51 MG OF VALSARTAN), (BID)
     Route: 048
     Dates: start: 2017
  16. PARACETAMOL [Concomitant]
     Active Substance: ACETAMINOPHEN
     Indication: ARTHRALGIA
  17. SACUBITRIL/VALSARTAN [Concomitant]
     Active Substance: SACUBITRIL\VALSARTAN
     Indication: CARDIAC DISORDER
     Dosage: SACUBITRIL: 49.0MG VALSARTAN: 51.0MG
     Route: 048
     Dates: start: 201802
  18. FUROSEMIDE. [Concomitant]
     Active Substance: FUROSEMIDE
     Indication: PRODUCT USED FOR UNKNOWN INDICATION
  19. SACUBITRIL/VALSARTAN [Concomitant]
     Active Substance: SACUBITRIL\VALSARTAN
     Indication: CARDIAC FAILURE
     Dosage: SACUBITRIL: 49.0MG VALSARTAN: 51.0MG
     Route: 048
     Dates: start: 201802
  20. SACUBITRIL/VALSARTAN [Concomitant]
     Active Substance: SACUBITRIL\VALSARTAN
     Indication: CARDIAC FAILURE
     Dosage: SACUBITRIL: 49.0MG VALSARTAN: 51.0MG
     Route: 048
     Dates: start: 201805
  21. SACUBITRIL/VALSARTAN [Concomitant]
     Active Substance: SACUBITRIL\VALSARTAN
     Indication: CARDIAC FAILURE
     Dosage: SACUBITRIL: 49.0MG VALSARTAN: 51.0MG
     Route: 048
     Dates: start: 201702
  22. SACUBITRIL/VALSARTAN [Concomitant]
     Active Substance: SACUBITRIL\VALSARTAN
     Indication: CARDIAC DISORDER
     Dosage: SACUBITRIL: 49.0MG VALSARTAN: 51.0MG
     Route: 048
     Dates: start: 201702
  23. PARACETAMOL [Concomitant]
     Active Substance: ACETAMINOPHEN
     Indication: ARTHRALGIA
  24. SACUBITRIL/VALSARTAN [Concomitant]
     Active Substance: SACUBITRIL\VALSARTAN
     Indication: HYPERTENSION
     Dosage: (49 MG OF SACUBITRIL, 51 MG OF VALSARTAN), (BID)
     Route: 048
     Dates: start: 2017
  25. SACUBITRIL/VALSARTAN [Concomitant]
     Active Substance: SACUBITRIL\VALSARTAN
     Indication: CARDIAC FAILURE
     Dosage: AT A DOSE OF 0.5 DF (100 MG), BID?SACUBITRIL: 49.0MG VALSARTAN: 51.0MG
     Route: 048
     Dates: start: 201806
  26. SACUBITRIL/VALSARTAN [Concomitant]
     Active Substance: SACUBITRIL\VALSARTAN
     Indication: HYPERTENSION
     Dosage: SACUBITRIL: 49.0MG VALSARTAN: 51.0MG
     Route: 048
     Dates: start: 201802
  27. GABAPENTIN. [Concomitant]
     Active Substance: GABAPENTIN
     Indication: PAIN IN EXTREMITY
  28. ATENOLOL. [Suspect]
     Active Substance: ATENOLOL
     Indication: DYSPNOEA
     Dosage: 0.5DF UNKNOWN
     Route: 048
  29. TRAMADOL. [Concomitant]
     Active Substance: TRAMADOL
     Indication: ARTHRALGIA
  30. SACUBITRIL/VALSARTAN [Concomitant]
     Active Substance: SACUBITRIL\VALSARTAN
     Indication: HYPERTENSION
     Dosage: SACUBITRIL: 49.0MG VALSARTAN: 51.0MG
     Dates: start: 201702
  31. SACUBITRIL/VALSARTAN [Concomitant]
     Active Substance: SACUBITRIL\VALSARTAN
     Indication: CARDIAC FAILURE
     Dosage: SACUBITRIL: 49.0MG VALSARTAN: 51.0MG
     Route: 048
     Dates: start: 201802
  32. SACUBITRIL/VALSARTAN [Concomitant]
     Active Substance: SACUBITRIL\VALSARTAN
     Indication: CARDIAC DISORDER
     Dosage: DOSE OF 0.5 DF (100 MG), BID?SACUBITRIL: 49.0MG VALSARTAN: 51.0MG
     Route: 048
     Dates: start: 201806
  33. SACUBITRIL/VALSARTAN [Concomitant]
     Active Substance: SACUBITRIL\VALSARTAN
     Indication: BLOOD PRESSURE ABNORMAL
     Dosage: (49 MG OF SACUBITRIL AND 51 MG OF VALSARTAN), ORAL (BID)
     Route: 048
     Dates: start: 2017
  34. SACUBITRIL/VALSARTAN [Concomitant]
     Active Substance: SACUBITRIL\VALSARTAN
     Indication: CARDIAC DISORDER
     Dosage: (100 MG) BID ?SACUBITRIL: 49.0MG VALSARTAN: 51.0D (MG
     Route: 048
     Dates: start: 201805
  35. RIVAROXABAN [Concomitant]
     Active Substance: RIVAROXABAN
     Indication: ANTICOAGULANT THERAPY
     Dosage: 20 MG
  36. SPIRONOLACTONE. [Concomitant]
     Active Substance: SPIRONOLACTONE
     Indication: PRODUCT USED FOR UNKNOWN INDICATION
  37. SACUBITRIL/VALSARTAN [Concomitant]
     Active Substance: SACUBITRIL\VALSARTAN
     Indication: BLOOD PRESSURE ABNORMAL
     Route: 048
     Dates: start: 201702
  38. METOPROLOL. [Suspect]
     Active Substance: METOPROLOL
     Indication: ATRIAL PRESSURE
     Dosage: 100 MG
     Route: 048
     Dates: start: 201805
  39. SACUBITRIL/VALSARTAN [Concomitant]
     Active Substance: SACUBITRIL\VALSARTAN
     Indication: CARDIAC FAILURE
     Dosage: MORE THAN 10 YEARS AGO?SACUBITRIL: 49.0MG VALSARTAN: 51.0MG
     Route: 048
     Dates: start: 201702
  40. OXYGEN. [Concomitant]
     Active Substance: OXYGEN
     Indication: PRODUCT USED FOR UNKNOWN INDICATION
  41. GABAPENTIN. [Concomitant]
     Active Substance: GABAPENTIN
     Indication: ARTHRALGIA
  42. SACUBITRIL/VALSARTAN [Concomitant]
     Active Substance: SACUBITRIL\VALSARTAN
     Indication: CARDIAC FAILURE
     Dosage: (49 MG OF SACUBITRIL AND 51 MG OF VALSARTAN), (BID)
     Route: 048
     Dates: start: 2017

REACTIONS (42)
  - Tendonitis [Unknown]
  - Renal disorder [Unknown]
  - Micturition disorder [Unknown]
  - Fatigue [Unknown]
  - Micturition frequency decreased [Unknown]
  - Muscle contractions involuntary [Unknown]
  - Glucose tolerance impaired [Unknown]
  - Cardiac disorder [Unknown]
  - Limb discomfort [Unknown]
  - Respiratory disorder [Unknown]
  - Neuropathy peripheral [Unknown]
  - Blood potassium decreased [Unknown]
  - Hypersensitivity [Unknown]
  - Arthralgia [Unknown]
  - Diaphragmatic disorder [Unknown]
  - Blood pressure decreased [Unknown]
  - Headache [Unknown]
  - Head discomfort [Unknown]
  - Fungal skin infection [Unknown]
  - Hyperhidrosis [Unknown]
  - Loss of consciousness [Unknown]
  - Restlessness [Unknown]
  - Abdominal distension [Unknown]
  - Feeling abnormal [Unknown]
  - Visual impairment [Unknown]
  - Syncope [Unknown]
  - Influenza [Unknown]
  - Prostatic disorder [Unknown]
  - Movement disorder [Unknown]
  - Weight increased [Unknown]
  - Asthenia [Unknown]
  - Dyspnoea [Unknown]
  - Insomnia [Unknown]
  - Pain in extremity [Unknown]
  - Arrhythmia [Unknown]
  - Eye swelling [Unknown]
  - Joint swelling [Unknown]
  - Fall [Unknown]
  - Cardiomegaly [Unknown]
  - Disease progression [Unknown]
  - Chest discomfort [Unknown]
  - Burn oesophageal [Unknown]

NARRATIVE: CASE EVENT DATE: 20180417
